FAERS Safety Report 16291611 (Version 2)
Quarter: 2019Q2

REPORT INFORMATION
  Report Type: Spontaneous
  Country: US (occurrence: US)
  Receive Date: 20190509
  Receipt Date: 20190522
  Transmission Date: 20190711
  Serious: Yes (Other)
  Sender: FDA-Public Use
  Company Number: US-PFIZER INC-2019191023

PATIENT
  Sex: Female

DRUGS (2)
  1. INSPRA [Suspect]
     Active Substance: EPLERENONE
     Indication: BLOOD ALDOSTERONE INCREASED
     Dosage: UNK
  2. INSPRA [Suspect]
     Active Substance: EPLERENONE
     Indication: BLOOD POTASSIUM DECREASED

REACTIONS (4)
  - Optic nerve compression [Unknown]
  - Hypersensitivity [Unknown]
  - Hyperthyroidism [Unknown]
  - Periorbital oedema [Unknown]
